FAERS Safety Report 6577346-4 (Version None)
Quarter: 2010Q1

REPORT INFORMATION
  Report Type: 
  Country: None (occurrence: None)
  Receive Date: 20100211
  Receipt Date: 20100208
  Transmission Date: 20100710
  Serious: Yes (Other)
  Sender: FDA-Public Use
  Company Number: US-ASTRAZENECA-2009UW21239

PATIENT
  Age: 581 Month
  Sex: Female
  Weight: 111.1 kg

DRUGS (22)
  1. SEROQUEL [Suspect]
     Indication: AFFECTIVE DISORDER
     Dosage: 25-400 MG
     Route: 048
     Dates: start: 20031101, end: 20071001
  2. SEROQUEL [Suspect]
     Indication: CONVULSION
     Dosage: 25-400 MG
     Route: 048
     Dates: start: 20031101, end: 20071001
  3. SEROQUEL [Suspect]
     Indication: BIPOLAR DISORDER
     Dosage: 25-400 MG
     Route: 048
     Dates: start: 20031101, end: 20071001
  4. SEROQUEL [Suspect]
     Indication: POST-TRAUMATIC STRESS DISORDER
     Dosage: 25-400 MG
     Route: 048
     Dates: start: 20031101, end: 20071001
  5. SEROQUEL [Suspect]
     Indication: MAJOR DEPRESSION
     Dosage: 25-400 MG
     Route: 048
     Dates: start: 20031101, end: 20071001
  6. SEROQUEL [Suspect]
     Route: 048
     Dates: start: 20080103
  7. SEROQUEL [Suspect]
     Route: 048
     Dates: start: 20080103
  8. SEROQUEL [Suspect]
     Route: 048
     Dates: start: 20080103
  9. SEROQUEL [Suspect]
     Route: 048
     Dates: start: 20080103
  10. SEROQUEL [Suspect]
     Route: 048
     Dates: start: 20080103
  11. SEROQUEL [Suspect]
     Route: 048
     Dates: start: 20080411, end: 20080501
  12. SEROQUEL [Suspect]
     Route: 048
     Dates: start: 20080411, end: 20080501
  13. SEROQUEL [Suspect]
     Route: 048
     Dates: start: 20080411, end: 20080501
  14. SEROQUEL [Suspect]
     Route: 048
     Dates: start: 20080411, end: 20080501
  15. SEROQUEL [Suspect]
     Route: 048
     Dates: start: 20080411, end: 20080501
  16. RISPERDAL [Concomitant]
     Dates: start: 20060101, end: 20070101
  17. ZYPREXA/SYMBYAX [Concomitant]
     Dates: start: 20030801
  18. CONGENTIN BENZTROPINE [Concomitant]
     Dosage: 1-2 MG
     Dates: start: 20060101, end: 20090101
  19. PAXIL [Concomitant]
     Dosage: 25-37.5MG
     Dates: start: 20030101, end: 20040101
  20. TRILEPTAL [Concomitant]
     Dates: start: 20070101
  21. TOPAMAX [Concomitant]
     Dates: start: 20070101
  22. GABITRIL [Concomitant]
     Dates: start: 20030101

REACTIONS (28)
  - ANGINA PECTORIS [None]
  - BLOOD CHOLESTEROL INCREASED [None]
  - BRUXISM [None]
  - CARDIAC FAILURE CONGESTIVE [None]
  - CARPAL TUNNEL SYNDROME [None]
  - DIABETES MELLITUS INADEQUATE CONTROL [None]
  - DIABETIC NEUROPATHY [None]
  - DYSKINESIA [None]
  - ESSENTIAL HYPERTENSION [None]
  - EXTRAPYRAMIDAL DISORDER [None]
  - GASTROOESOPHAGEAL REFLUX DISEASE [None]
  - HYPERGLYCAEMIA [None]
  - HYPERLIPIDAEMIA [None]
  - HYPERTENSION [None]
  - INTERVERTEBRAL DISC DEGENERATION [None]
  - JOINT DISLOCATION [None]
  - LIP DRY [None]
  - MITRAL VALVE DISEASE [None]
  - NEUROPATHY PERIPHERAL [None]
  - OESOPHAGITIS [None]
  - PNEUMOCYSTIS JIROVECI PNEUMONIA [None]
  - SPINAL OSTEOARTHRITIS [None]
  - STAPHYLOCOCCAL INFECTION [None]
  - TARDIVE DYSKINESIA [None]
  - TRISMUS [None]
  - TYPE 2 DIABETES MELLITUS [None]
  - ULCER [None]
  - WEIGHT INCREASED [None]
